FAERS Safety Report 6029734-2 (Version None)
Quarter: 2009Q1

REPORT INFORMATION
  Report Type: 
  Country: None (occurrence: None)
  Receive Date: 20090107
  Receipt Date: 20081230
  Transmission Date: 20090719
  Serious: Yes (Other)
  Sender: FDA-Public Use
  Company Number: US-JNJFOC-20081103053

PATIENT
  Sex: Male
  Weight: 98.88 kg

DRUGS (15)
  1. REMICADE [Suspect]
     Route: 042
  2. REMICADE [Suspect]
     Route: 042
  3. REMICADE [Suspect]
     Route: 042
  4. REMICADE [Suspect]
     Route: 042
  5. REMICADE [Suspect]
     Route: 042
  6. REMICADE [Suspect]
     Route: 042
  7. REMICADE [Suspect]
     Route: 042
  8. REMICADE [Suspect]
     Route: 042
  9. REMICADE [Suspect]
     Route: 042
  10. REMICADE [Suspect]
     Indication: CROHN'S DISEASE
     Route: 042
  11. FOLIC ACID [Concomitant]
  12. UROCRITE [Concomitant]
  13. ALTASE [Concomitant]
     Route: 048
  14. FISH OIL [Concomitant]
  15. VITAMIN B-12 [Concomitant]
     Indication: ANAEMIA
     Route: 058

REACTIONS (1)
  - HYPERPARATHYROIDISM [None]
